FAERS Safety Report 9264986 (Version 1)
Quarter: 2013Q2

REPORT INFORMATION
  Report Type: Report from Study
  Country: US (occurrence: US)
  Receive Date: 20130501
  Receipt Date: 20130501
  Transmission Date: 20140414
  Serious: Yes (Hospitalization)
  Sender: FDA-Public Use
  Company Number: US-PURDUE-USA-2013-0101562

PATIENT
  Age: 52 Year
  Sex: Female

DRUGS (1)
  1. OXYCONTIN (NDA 22-272) [Suspect]
     Indication: INTERVERTEBRAL DISC PROTRUSION
     Dosage: 120 MG, DAILY
     Route: 048

REACTIONS (2)
  - Spinal fracture [Not Recovered/Not Resolved]
  - Road traffic accident [Not Recovered/Not Resolved]
